FAERS Safety Report 7399547-8 (Version None)
Quarter: 2011Q2

REPORT INFORMATION
  Report Type: 
  Country: None (occurrence: None)
  Receive Date: 20110407
  Receipt Date: 20101012
  Transmission Date: 20111010
  Serious: Yes (Hospitalization, Other)
  Sender: FDA-Public Use
  Company Number: US-BAYER-201029560NA

PATIENT
  Sex: Female
  Weight: 56.818 kg

DRUGS (11)
  1. VITAMIN B-12 [Concomitant]
  2. AMBIEN [Concomitant]
  3. ZYRTEC [Concomitant]
  4. ACETAMINOPHEN [Concomitant]
  5. LYRICA [Concomitant]
  6. VERAPAMIL [Concomitant]
  7. ELAVIL [Concomitant]
  8. ONDANSETRON [Concomitant]
  9. YAZ [Suspect]
     Indication: OVARIAN CYST
     Dates: start: 20070601, end: 20090901
  10. ALBUTEROL [Concomitant]
  11. MAGNESIUM [Concomitant]
     Indication: MIGRAINE

REACTIONS (3)
  - PANCREATITIS [None]
  - CHOLECYSTITIS [None]
  - ABDOMINAL PAIN [None]
